FAERS Safety Report 16032428 (Version 1)
Quarter: 2019Q1

REPORT INFORMATION
  Report Type: Report from Study
  Country: IT (occurrence: IT)
  Receive Date: 20190304
  Receipt Date: 20190304
  Transmission Date: 20190418
  Serious: Yes (Other)
  Sender: FDA-Public Use
  Company Number: PHHY2019IT045171

PATIENT
  Age: 53 Year
  Sex: Female

DRUGS (4)
  1. KISQALI [Suspect]
     Active Substance: RIBOCICLIB
     Dosage: 3 OT, QD (FOR 3 WEEKS A MONTH)
     Route: 065
     Dates: start: 20180602
  2. LETROZOLE. [Suspect]
     Active Substance: LETROZOLE
     Indication: PRODUCT USED FOR UNKNOWN INDICATION
     Dosage: UNK
     Route: 065
     Dates: start: 20180305
  3. CORTISONE [Suspect]
     Active Substance: CORTISONE\HYDROCORTISONE
     Indication: PRODUCT USED FOR UNKNOWN INDICATION
     Route: 065
  4. KISQALI [Suspect]
     Active Substance: RIBOCICLIB
     Indication: PRODUCT USED FOR UNKNOWN INDICATION
     Dosage: 3 OT, QD (FOR 3 WEEKS A MONTH)
     Route: 065
     Dates: start: 20180305, end: 201804

REACTIONS (11)
  - Cyst [Unknown]
  - Pruritus [Unknown]
  - Peripheral swelling [Unknown]
  - Full blood count decreased [Unknown]
  - Pneumonia [Unknown]
  - Arthralgia [Unknown]
  - Fatigue [Unknown]
  - Weight increased [Unknown]
  - Dry skin [Unknown]
  - Bone pain [Unknown]
  - Nausea [Unknown]

NARRATIVE: CASE EVENT DATE: 20180402
